FAERS Safety Report 24778344 (Version 2)
Quarter: 2025Q1

REPORT INFORMATION
  Report Type: Spontaneous
  Country: US (occurrence: US)
  Receive Date: 20241226
  Receipt Date: 20250220
  Transmission Date: 20250409
  Serious: Yes (Other)
  Sender: CSL BEHRING
  Company Number: US-BEH-2024188982

PATIENT
  Age: 63 Year
  Sex: Male

DRUGS (3)
  1. HIZENTRA [Suspect]
     Active Substance: HUMAN IMMUNOGLOBULIN G
     Indication: Selective polysaccharide antibody deficiency
     Dosage: 10 G, QW (0.2GM/ML)
     Route: 042
     Dates: start: 202006
  2. HIZENTRA [Suspect]
     Active Substance: HUMAN IMMUNOGLOBULIN G
     Indication: Hypergammaglobulinaemia
     Dosage: 10 G, QW (0.2GM/ML)
     Route: 058
     Dates: start: 202006
  3. TEZSPIRE [Concomitant]
     Active Substance: TEZEPELUMAB-EKKO

REACTIONS (9)
  - Pneumonia [Unknown]
  - Pneumonia pseudomonal [Recovering/Resolving]
  - Dyspnoea [Unknown]
  - Cough [Unknown]
  - Secretion discharge [Unknown]
  - Mouth ulceration [Unknown]
  - Stomatitis [Unknown]
  - Skin discolouration [Unknown]
  - Dysphonia [Unknown]

NARRATIVE: CASE EVENT DATE: 20241001
